FAERS Safety Report 7875498-7 (Version None)
Quarter: 2011Q4

REPORT INFORMATION
  Report Type: 
  Country: None (occurrence: None)
  Receive Date: 20111031
  Receipt Date: 20111025
  Transmission Date: 20120403
  Serious: No
  Sender: FDA-Public Use
  Company Number: PHEH2011US07700

PATIENT
  Sex: Male

DRUGS (27)
  1. HYDREA [Concomitant]
     Dosage: 500 MG, QD
  2. WARFARIN SODIUM [Concomitant]
     Dosage: 1 MG, QD
  3. LOSARTAN POTASSIUM [Concomitant]
     Dosage: 25 MG, QD
  4. ALLERGY [Concomitant]
     Dosage: UNK UKN, UNK
  5. DIGOXIN [Concomitant]
     Dosage: 0.125 MG, QD
  6. ADVAIR DISKUS 100/50 [Concomitant]
     Dosage: UNK UKN, UNK
  7. METOPROLOL [Concomitant]
     Dosage: 25 MG, QD
  8. JANUVIA [Concomitant]
     Dosage: 25 MG, QD
  9. GABAPENTIN [Concomitant]
     Dosage: 100 MG, QD
  10. TASIGNA [Suspect]
     Dosage: 300 MG, BID
     Route: 048
  11. GLIMEPIRIDE [Concomitant]
     Dosage: 1 MG, QD
  12. AMIODARONE HCL [Concomitant]
     Dosage: 200 MG, QD
  13. ALLOPURINOL [Concomitant]
     Dosage: 100 MG, QD
  14. FLOMAX [Concomitant]
     Dosage: 0.4 MG, QD
  15. ATROVENT [Concomitant]
     Dosage: 17 UG, QD
  16. CENTRUM [Concomitant]
     Dosage: UNK UKN, UNK
  17. FLUTICASONE PROPIONATE [Concomitant]
     Dosage: 50 UG, QD
  18. LIPITOR [Concomitant]
     Dosage: 10 MG, QD
  19. BUMETANIDE [Concomitant]
     Dosage: 0.5 MG, QD
  20. FINASTERIDE [Concomitant]
     Dosage: 5 MG, QD
  21. NOVOLIN R [Concomitant]
     Dosage: 100 U, QD
  22. PRILOSEC [Concomitant]
     Dosage: 10 MG, QD
  23. FISH OIL [Concomitant]
     Dosage: UNK UKN, UNK
  24. POTASSIUM [Concomitant]
     Dosage: 25 MEQ, QD
  25. CITALOPRAM HYDROBROMIDE [Concomitant]
     Dosage: 10 MG, QD
  26. LEVOTHYROXINE SODIUM [Concomitant]
     Dosage: 25 UG, QD
  27. SPIRONO [Concomitant]
     Dosage: 25 MG, QD

REACTIONS (3)
  - SOMNOLENCE [None]
  - FATIGUE [None]
  - PAIN [None]
